FAERS Safety Report 26012747 (Version 2)
Quarter: 2025Q4

REPORT INFORMATION
  Report Type: Spontaneous
  Country: US (occurrence: US)
  Receive Date: 20251107
  Receipt Date: 20251226
  Transmission Date: 20260118
  Serious: Yes (Other)
  Sender: AURINIA PHARMACEUTICALS
  Company Number: AUR-007126

PATIENT
  Age: 60 Year
  Sex: Female

DRUGS (5)
  1. LUPKYNIS [Suspect]
     Active Substance: VOCLOSPORIN
     Indication: Lupus nephritis
     Dosage: 15.8 MILLIGRAM, BID
     Route: 061
  2. LUPKYNIS [Suspect]
     Active Substance: VOCLOSPORIN
     Dosage: 23.7 MILLIGRAM, BID
     Route: 061
     Dates: start: 20241127, end: 20241202
  3. LUPKYNIS [Suspect]
     Active Substance: VOCLOSPORIN
     Dosage: UNK
     Route: 061
  4. LUPKYNIS [Suspect]
     Active Substance: VOCLOSPORIN
     Dosage: 23.7 MILLIGRAM, BID
     Route: 061
     Dates: start: 20241007
  5. VALSARTAN [Suspect]
     Active Substance: VALSARTAN
     Indication: Product used for unknown indication
     Dosage: TWICE DAILY VALSARTAN 160

REACTIONS (14)
  - Glaucoma [Not Recovered/Not Resolved]
  - Renal impairment [Not Recovered/Not Resolved]
  - Hyperkalaemia [Recovered/Resolved]
  - Somnolence [Unknown]
  - Illness [Unknown]
  - Corneal disorder [Not Recovered/Not Resolved]
  - Tremor [Unknown]
  - Nausea [Recovering/Resolving]
  - Retinal disorder [Not Recovered/Not Resolved]
  - Fatigue [Not Recovered/Not Resolved]
  - Arthralgia [Not Recovered/Not Resolved]
  - Proteinuria [Recovered/Resolved]
  - Asthenia [Not Recovered/Not Resolved]
  - Therapy interrupted [Unknown]

NARRATIVE: CASE EVENT DATE: 20241202
